FAERS Safety Report 6856694-4 (Version None)
Quarter: 2010Q3

REPORT INFORMATION
  Report Type: 
  Country: None (occurrence: None)
  Receive Date: 20100719
  Receipt Date: 20100709
  Transmission Date: 20110219
  Serious: Yes (Hospitalization)
  Sender: FDA-Public Use
  Company Number: US-BAYER-201024825NA

PATIENT
  Age: 31 Year
  Sex: Female

DRUGS (46)
  1. FLUDARA [Suspect]
     Indication: ACUTE MYELOID LEUKAEMIA
     Dosage: X 4 DAYS
     Route: 042
     Dates: start: 20100415, end: 20100418
  2. NEUPOGEN [Suspect]
     Indication: ACUTE MYELOID LEUKAEMIA
     Dosage: X 6 DAYS
     Route: 058
     Dates: start: 20100412, end: 20100417
  3. PLERIXAFOR [Suspect]
     Indication: ACUTE MYELOID LEUKAEMIA
     Dosage: X 4 DAYS
     Route: 058
     Dates: start: 20100414, end: 20100417
  4. BUSULFAN [Suspect]
     Indication: ACUTE MYELOID LEUKAEMIA
     Dosage: X 4 DAYS
     Route: 042
     Dates: start: 20100415, end: 20100418
  5. ANTI-THYMOCYTE GLOBULIN NOS [Suspect]
     Indication: ACUTE MYELOID LEUKAEMIA
     Dosage: X 1 DAY
     Route: 042
     Dates: start: 20100418, end: 20100420
  6. ANTI-THYMOCYTE GLOBULIN NOS [Suspect]
     Dosage: X 1 DAY
     Route: 042
     Dates: start: 20100418, end: 20100420
  7. ANTI-THYMOCYTE GLOBULIN NOS [Suspect]
     Dosage: X 1 DAY
     Route: 042
     Dates: start: 20100418, end: 20100420
  8. ACETAMINOPHEN [Concomitant]
     Dosage: Q 4 HRS
     Route: 048
  9. ALBUMIN (HUMAN) [Concomitant]
     Dosage: TOTAL DAILY DOSE: 100 G
     Route: 042
  10. ATENOLOL [Concomitant]
     Dosage: TOTAL DAILY DOSE: 50 MG
     Route: 048
  11. ATOVAQUONE [Concomitant]
     Dosage: TOTAL DAILY DOSE: 1500 MG
     Route: 048
  12. BENZONATATE [Concomitant]
     Dosage: Q 8 HOURS
     Route: 048
  13. CASPOFUNGIN ACETATE [Concomitant]
     Dosage: TOTAL DAILY DOSE: 35 MG
     Route: 042
  14. CITALOPRAM HYDROBROMIDE [Concomitant]
     Dosage: TOTAL DAILY DOSE: 20 MG
     Route: 048
  15. CLONAZEPAM [Concomitant]
     Dosage: Q 8 HOURS
     Route: 048
  16. CYCLOBENZAPRINE [Concomitant]
     Dosage: TID
     Route: 048
  17. DIPHENHYDRAMINE [Concomitant]
     Dosage: SHORT INFUSION
     Route: 042
  18. FUROSEMIDE [Concomitant]
     Dosage: Q 20 HOURS
     Route: 042
  19. GABAPENTIN [Concomitant]
     Dosage: TOTAL DAILY DOSE: 300 MG
     Route: 048
  20. GUAIFENESIN [Concomitant]
     Dosage: BID
     Route: 048
  21. HYDROCORTISONE [Concomitant]
     Dosage: EXTERNAL
     Route: 061
  22. LEVALBUTEROL HCL [Concomitant]
     Dosage: ROUTINE MED
     Route: 055
  23. LOPERAMIDE [Concomitant]
     Dosage: AC
     Route: 048
  24. MEROPENEM [Concomitant]
     Dosage: TOTAL DAILY DOSE: 2 G
     Route: 042
  25. MORPHINE [Concomitant]
     Dosage: SHORT INFUSION - Q 4 HOURS VIA PUMP
     Route: 042
  26. NYSTATIN [Concomitant]
     Dosage: AS USED: 100,000 U
  27. ONDANSETRON [Concomitant]
     Dosage: SHORT INFUSION - Q 6 HOURS
     Route: 042
  28. OXYCODONE HCL [Concomitant]
     Dosage: Q 4 HOURS
     Route: 048
  29. OXYCODONE HCL [Concomitant]
     Dosage: Q 4 HOURS
     Route: 048
  30. POTASSIUM CHLORIDE [Concomitant]
     Dosage: SLIDING SCALE
     Route: 042
  31. POTASSIUM CHLORIDE [Concomitant]
     Dosage: SLIDING SCALE
     Route: 042
  32. POTASSIUM CHLORIDE [Concomitant]
     Dosage: SLIDING SCALE
     Route: 042
  33. SEVELAMER HCL [Concomitant]
     Dosage: TOTAL DAILY DOSE: 2400 MG
     Route: 048
  34. SODIUM CHLORIDE [Concomitant]
     Dosage: SHORT INFUSION - AS NEEDED
     Route: 042
  35. SODIUM CHLORIDE [Concomitant]
     Dosage: UD
     Route: 048
  36. SODIUM CHLORIDE [Concomitant]
     Dosage: SHORT INFUSION - Q 4 HOURS VIA PUMP
     Route: 042
  37. SODIUM CHLORIDE [Concomitant]
     Dosage: SHORT INFUSION - Q 6 HOURS
     Route: 042
  38. SODIUM CHLORIDE [Concomitant]
     Dosage: TOTAL DAILY DOSE: 1000 ML
     Route: 042
  39. SODIUM CITRATE + CITRIC ACID [Concomitant]
     Dosage: TOTAL DAILY DOSE: 60 ML
     Route: 048
  40. SPIRONOLACTONE [Concomitant]
     Dosage: TOTAL DAILY DOSE: 150 MG
     Route: 048
  41. SUCRALFATE [Concomitant]
     Dosage: Q 6 HOURS
     Route: 048
  42. SUMATRIPTAN [Concomitant]
     Dosage: TOTAL DAILY DOSE: 50 MG
     Route: 048
  43. TACROLIMUS [Concomitant]
     Dosage: TOTAL DAILY DOSE: 0.2 MG
     Route: 042
  44. URSODIOL [Concomitant]
     Dosage: TOTAL DAILY DOSE: 900 MG
     Route: 048
  45. VALACYCLOVIR HYDROCHLORIDE [Concomitant]
     Route: 048
  46. XYLOXYLIN [Concomitant]
     Dosage: Q 4 HOURS
     Route: 048

REACTIONS (8)
  - ASCITES [None]
  - DYSPNOEA [None]
  - MUCOSAL INFLAMMATION [None]
  - PLEURAL EFFUSION [None]
  - PNEUMONIA [None]
  - PYREXIA [None]
  - STOMATITIS [None]
  - VENOOCCLUSIVE DISEASE [None]
